FAERS Safety Report 25212893 (Version 1)
Quarter: 2025Q2

REPORT INFORMATION
  Report Type: Report from Study
  Country: US (occurrence: US)
  Receive Date: 20250418
  Receipt Date: 20250418
  Transmission Date: 20250716
  Serious: Yes (Other)
  Sender: ALEXION PHARMACEUTICALS
  Company Number: US-AstraZeneca-CH-00848256A

PATIENT

DRUGS (1)
  1. CAPIVASERTIB [Suspect]
     Active Substance: CAPIVASERTIB
     Indication: Neoplasm malignant

REACTIONS (5)
  - Hypoaesthesia [Unknown]
  - Gastric ulcer [Unknown]
  - Paraesthesia [Unknown]
  - Arthralgia [Unknown]
  - Metastases to bone [Unknown]
